FAERS Safety Report 4952033-4 (Version None)
Quarter: 2006Q1

REPORT INFORMATION
  Report Type: 
  Country: None (occurrence: None)
  Receive Date: 20060320
  Receipt Date: 20060308
  Transmission Date: 20060701
  Serious: Yes (Hospitalization, Other)
  Sender: FDA-Public Use
  Company Number: 2006035127

PATIENT
  Age: 34 Year

DRUGS (2)
  1. PHENYTOIN SODIUM [Suspect]
     Indication: ILL-DEFINED DISORDER
     Dosage: 200 MG (1 D)
  2. CARBAMAZEPINE [Suspect]
     Indication: ILL-DEFINED DISORDER
     Dosage: 1200 MG (1 D)

REACTIONS (6)
  - COMPLEX PARTIAL SEIZURES [None]
  - COORDINATION ABNORMAL [None]
  - FALL [None]
  - OBSESSIVE THOUGHTS [None]
  - TRAUMATIC BRAIN INJURY [None]
  - TREMOR [None]
